FAERS Safety Report 25081686 (Version 1)
Quarter: 2025Q1

REPORT INFORMATION
  Report Type: Spontaneous
  Country: CN (occurrence: CN)
  Receive Date: 20250316
  Receipt Date: 20250316
  Transmission Date: 20250409
  Serious: Yes (Other)
  Sender: Kenvue
  Company Number: CN-KENVUE-20250302574

PATIENT

DRUGS (1)
  1. MOTRIN INFANTS [Suspect]
     Active Substance: IBUPROFEN
     Indication: Patent ductus arteriosus
     Dosage: 0.11 MILLILITER, ONCE A DAY
     Route: 065
     Dates: start: 20250228, end: 20250301

REACTIONS (3)
  - Off label use [Unknown]
  - Urine output decreased [Recovering/Resolving]
  - Hydrops foetalis [Recovering/Resolving]

NARRATIVE: CASE EVENT DATE: 20250228
